FAERS Safety Report 5006442-8 (Version None)
Quarter: 2006Q2

REPORT INFORMATION
  Report Type: 
  Country: None (occurrence: None)
  Receive Date: 20060516
  Receipt Date: 20060427
  Transmission Date: 20061013
  Serious: Yes (Hospitalization, Other)
  Sender: FDA-Public Use
  Company Number: US200605000029

PATIENT
  Age: 74 Year
  Sex: Male

DRUGS (1)
  1. HUMALOG [Suspect]

REACTIONS (5)
  - BLOOD GLUCOSE INCREASED [None]
  - DEVICE FAILURE [None]
  - PHARMACEUTICAL PRODUCT COMPLAINT [None]
  - VASCULAR BYPASS GRAFT [None]
  - WRONG TECHNIQUE IN DRUG USAGE PROCESS [None]
